FAERS Safety Report 9632053 (Version 2)
Quarter: 2013Q4

REPORT INFORMATION
  Report Type: Spontaneous
  Country: JP (occurrence: JP)
  Receive Date: 20131018
  Receipt Date: 20131107
  Transmission Date: 20140711
  Serious: Yes (Hospitalization, Other)
  Sender: FDA-Public Use
  Company Number: JP-ASTRAZENECA-2013SE75431

PATIENT
  Age: 53 Year
  Sex: Male
  Weight: 80 kg

DRUGS (3)
  1. CARBOCAINE [Suspect]
     Indication: NERVE BLOCK
     Route: 053
  2. CARBOCAINE [Suspect]
     Indication: NERVE BLOCK
     Route: 053
  3. ASPIRIN [Concomitant]
     Indication: HEAD DISCOMFORT

REACTIONS (1)
  - Cerebral infarction [Recovering/Resolving]
